FAERS Safety Report 16815880 (Version 1)
Quarter: 2019Q3

REPORT INFORMATION
  Report Type: Spontaneous
  Country: US (occurrence: US)
  Receive Date: 20190917
  Receipt Date: 20190917
  Transmission Date: 20191005
  Serious: No
  Sender: FDA-Public Use
  Company Number: US-BION-007857

PATIENT
  Age: 84 Year
  Sex: Female
  Weight: 57.61 kg

DRUGS (2)
  1. MEXILETINE [Concomitant]
     Active Substance: MEXILETINE
     Dosage: 1 X 12 HOURS
  2. ZYRTEC [Suspect]
     Active Substance: CETIRIZINE HYDROCHLORIDE
     Indication: RHINORRHOEA
     Dosage: DOSE: 1 GEL
     Route: 048
     Dates: end: 20190304

REACTIONS (1)
  - Drug ineffective [Not Recovered/Not Resolved]
